FAERS Safety Report 17638076 (Version 1)
Quarter: 2020Q2

REPORT INFORMATION
  Report Type: Spontaneous
  Country: US (occurrence: US)
  Receive Date: 20200407
  Receipt Date: 20200407
  Transmission Date: 20200713
  Serious: Yes (Hospitalization, Other)
  Sender: FDA-Public Use
  Company Number: US-JNJFOC-20200341516

PATIENT
  Age: 70 Year
  Sex: Female

DRUGS (6)
  1. RISPERDAL [Suspect]
     Active Substance: RISPERIDONE
     Dosage: DECREASED TO RISPERIDONE 2MG TWICE DAILY
     Route: 065
  2. RISPERDAL [Suspect]
     Active Substance: RISPERIDONE
     Indication: SCHIZOAFFECTIVE DISORDER BIPOLAR TYPE
     Dosage: 3 MG AT NIGHT
     Route: 065
  3. RISPERDAL [Suspect]
     Active Substance: RISPERIDONE
     Dosage: RISPERIDONE 5 MG IN THE MORNING
     Route: 065
  4. HALDOL [Suspect]
     Active Substance: HALOPERIDOL
     Dosage: HALOPERIDOL 2 MG IN THE MORNING
     Route: 065
  5. GABAPENTIN. [Concomitant]
     Active Substance: GABAPENTIN
     Indication: PRODUCT USED FOR UNKNOWN INDICATION
     Route: 065
  6. HALDOL [Suspect]
     Active Substance: HALOPERIDOL
     Indication: SCHIZOAFFECTIVE DISORDER BIPOLAR TYPE
     Dosage: 1 MG AT NIGHT
     Route: 065

REACTIONS (5)
  - Abnormal behaviour [Recovering/Resolving]
  - Hypomania [Recovering/Resolving]
  - Hypersexuality [Recovering/Resolving]
  - Paranoia [Recovering/Resolving]
  - Irritability [Recovering/Resolving]
